FAERS Safety Report 9679539 (Version 1)
Quarter: 2013Q4

REPORT INFORMATION
  Report Type: Spontaneous
  Country: US (occurrence: US)
  Receive Date: 20131109
  Receipt Date: 20131109
  Transmission Date: 20140711
  Serious: No
  Sender: FDA-Public Use
  Company Number: US-SANOFI-AVENTIS-2013SA083178

PATIENT
  Age: 74 Year
  Sex: Female

DRUGS (4)
  1. ALLEGRA-D [Suspect]
     Indication: EAR DISCOMFORT
     Dosage: 180/240 MG
     Route: 048
  2. ALLEGRA-D [Suspect]
     Indication: NASAL CONGESTION
     Dosage: 180/240 MG
     Route: 048
  3. CHLORTRIMETON [Concomitant]
     Route: 065
  4. TYLENOL [Concomitant]

REACTIONS (2)
  - Somnolence [Unknown]
  - Insomnia [Unknown]
